FAERS Safety Report 25942329 (Version 1)
Quarter: 2025Q4

REPORT INFORMATION
  Report Type: Spontaneous
  Country: CA (occurrence: CA)
  Receive Date: 20251021
  Receipt Date: 20251021
  Transmission Date: 20260118
  Serious: Yes (Other)
  Sender: SANDOZ
  Company Number: CA-SANDOZ-SDZ2025CA076839

PATIENT
  Sex: Female
  Weight: 51 kg

DRUGS (1)
  1. ZOLEDRONIC ACID [Suspect]
     Active Substance: ZOLEDRONIC ACID
     Indication: Osteoporosis
     Dosage: UNK 1 EVERY 1 YEAR
     Route: 065

REACTIONS (3)
  - Thalassaemia [Unknown]
  - Chronic kidney disease [Unknown]
  - Anaemia [Unknown]
